FAERS Safety Report 6087969 (Version 12)
Quarter: 2015Q2

REPORT INFORMATION
  Report Type: Spontaneous
  Country: US (occurrence: US)
  Receive Date: 20060721
  Receipt Date: 20150608
  Transmission Date: 20150821
  Serious: Yes (Life-Threatening, Hospitalization, Other)
  Sender: FDA-Public Use
  Company Number: US-ASTRAZENECA-2006UW14368

PATIENT
  Age: 47 Year
  Sex: Male
  Weight: 94.3 kg

DRUGS (75)
  1. SEROQUEL [Suspect]
     Active Substance: QUETIAPINE FUMARATE
     Indication: SCHIZOPHRENIA
     Dosage: 25-50 MG HS PLUS 25 MG BID PRN
     Route: 048
     Dates: start: 20041206
  2. SEROQUEL [Suspect]
     Active Substance: QUETIAPINE FUMARATE
     Indication: POST-TRAUMATIC STRESS DISORDER
     Dosage: 25-50 MG HS PLUS 25 MG BID PRN
     Route: 048
     Dates: start: 20041206
  3. SEROQUEL [Suspect]
     Active Substance: QUETIAPINE FUMARATE
     Indication: AFFECTIVE DISORDER
     Dosage: 25-50 MG HS PLUS 25 MG BID PRN
     Route: 048
     Dates: start: 20041206
  4. SEROQUEL [Suspect]
     Active Substance: QUETIAPINE FUMARATE
     Indication: SCHIZOPHRENIA
     Dosage: 25 TO 75 MG
     Route: 048
     Dates: start: 20041206, end: 20051215
  5. SEROQUEL [Suspect]
     Active Substance: QUETIAPINE FUMARATE
     Indication: SCHIZOPHRENIA
     Route: 048
     Dates: start: 20051130, end: 20061201
  6. TRAZODONE [Concomitant]
     Active Substance: TRAZODONE HYDROCHLORIDE
     Indication: INSOMNIA
     Dates: start: 20001120
  7. TRAZODONE [Concomitant]
     Active Substance: TRAZODONE HYDROCHLORIDE
     Indication: DEPRESSION
     Dates: start: 20001120
  8. TRAZODONE [Concomitant]
     Active Substance: TRAZODONE HYDROCHLORIDE
     Indication: DEPRESSION
     Dates: start: 20020829
  9. FLUOXETINE [Concomitant]
     Active Substance: FLUOXETINE\FLUOXETINE HYDROCHLORIDE
  10. SERZONE [Concomitant]
     Active Substance: NEFAZODONE HYDROCHLORIDE
  11. HYDROCODONE/APAP [Concomitant]
     Active Substance: ACETAMINOPHEN\HYDROCODONE
     Dosage: ONE TO TWO TABLETS BY MOUTH FOUR TIMES A DAY
     Dates: start: 20051017
  12. SEROQUEL [Suspect]
     Active Substance: QUETIAPINE FUMARATE
     Indication: ANXIETY
     Dosage: 25-50 MG HS PLUS 25 MG BID PRN
     Route: 048
     Dates: start: 20041206
  13. SEROQUEL [Suspect]
     Active Substance: QUETIAPINE FUMARATE
     Indication: SCHIZOPHRENIA
     Route: 048
     Dates: start: 20051103, end: 20051215
  14. SEROQUEL [Suspect]
     Active Substance: QUETIAPINE FUMARATE
     Indication: AGITATION
     Route: 048
     Dates: start: 20051130, end: 20061201
  15. TRAZODONE [Concomitant]
     Active Substance: TRAZODONE HYDROCHLORIDE
     Indication: INSOMNIA
     Dates: start: 19991025
  16. FEXOFENADINE HCL [Concomitant]
     Active Substance: FEXOFENADINE HYDROCHLORIDE
     Route: 048
  17. MIRTAZAPINE. [Concomitant]
     Active Substance: MIRTAZAPINE
  18. POTASSIUM CHLORIDE. [Concomitant]
     Active Substance: POTASSIUM CHLORIDE
     Dates: start: 20051017
  19. CLONAZEPAM. [Concomitant]
     Active Substance: CLONAZEPAM
     Dates: start: 20110710
  20. PRAZOSIN [Concomitant]
     Active Substance: PRAZOSIN
     Indication: ABNORMAL DREAMS
     Route: 048
  21. SEROQUEL [Suspect]
     Active Substance: QUETIAPINE FUMARATE
     Indication: AFFECTIVE DISORDER
     Dosage: 25 TO 75 MG
     Route: 048
     Dates: start: 20041206, end: 20051215
  22. SEROQUEL [Suspect]
     Active Substance: QUETIAPINE FUMARATE
     Indication: AFFECTIVE DISORDER
     Route: 048
     Dates: start: 20051130, end: 20061201
  23. SERTRALINE [Concomitant]
     Active Substance: SERTRALINE HYDROCHLORIDE
     Indication: DEPRESSION
     Dates: start: 19991025, end: 20030611
  24. HYDROCHLOROTHIAZIDE. [Concomitant]
     Active Substance: HYDROCHLOROTHIAZIDE
     Route: 048
  25. PREVACID [Concomitant]
     Active Substance: LANSOPRAZOLE
     Dates: start: 20051018
  26. MAGNESIUM OXIDE. [Concomitant]
     Active Substance: MAGNESIUM OXIDE
     Indication: HYPOMAGNESAEMIA
     Dates: start: 20051017
  27. METHADONE [Concomitant]
     Active Substance: METHADONE HYDROCHLORIDE
     Indication: PAIN
     Dosage: 5 MG ONE HALF TABLET EVERY EIGHT HOURS
     Dates: start: 20051017
  28. SEROQUEL [Suspect]
     Active Substance: QUETIAPINE FUMARATE
     Indication: AGITATION
     Dosage: 25-50 MG HS PLUS 25 MG BID PRN
     Route: 048
     Dates: start: 20041206
  29. TRAZODONE [Concomitant]
     Active Substance: TRAZODONE HYDROCHLORIDE
     Indication: DEPRESSION
     Dates: start: 19991025
  30. TRAZODONE [Concomitant]
     Active Substance: TRAZODONE HYDROCHLORIDE
     Indication: DEPRESSION
     Route: 048
     Dates: start: 20061005
  31. MULTIVITAMIN [Concomitant]
     Active Substance: VITAMINS
  32. RANITIDINE HCL [Concomitant]
     Active Substance: RANITIDINE HYDROCHLORIDE
     Indication: GASTROINTESTINAL DISORDER
     Route: 048
  33. HALDOL [Concomitant]
     Active Substance: HALOPERIDOL
     Dosage: 5 MG EVERY THREE HOURS
     Dates: start: 20051018, end: 20051028
  34. SEROQUEL [Suspect]
     Active Substance: QUETIAPINE FUMARATE
     Indication: BIPOLAR I DISORDER
     Dosage: 25-50 MG HS PLUS 25 MG BID PRN
     Route: 048
     Dates: start: 20041206
  35. SEROQUEL [Suspect]
     Active Substance: QUETIAPINE FUMARATE
     Indication: BIPOLAR I DISORDER
     Dosage: 25 TO 75 MG
     Route: 048
     Dates: start: 20041206, end: 20051215
  36. SEROQUEL [Suspect]
     Active Substance: QUETIAPINE FUMARATE
     Indication: AGITATION
     Dosage: 25 TO 75 MG
     Route: 048
     Dates: start: 20041206, end: 20051215
  37. SEROQUEL [Suspect]
     Active Substance: QUETIAPINE FUMARATE
     Indication: ANXIETY
     Route: 048
     Dates: start: 20051103, end: 20051215
  38. SEROQUEL [Suspect]
     Active Substance: QUETIAPINE FUMARATE
     Indication: AGITATION
     Route: 048
     Dates: start: 20051103, end: 20051215
  39. TRAZODONE [Concomitant]
     Active Substance: TRAZODONE HYDROCHLORIDE
     Indication: INSOMNIA
     Dates: start: 20020829
  40. TRAZODONE [Concomitant]
     Active Substance: TRAZODONE HYDROCHLORIDE
     Indication: DEPRESSION
     Dates: start: 20110710
  41. HYDROCODONE [Concomitant]
     Active Substance: HYDROCODONE
  42. NEXIUM [Concomitant]
     Active Substance: ESOMEPRAZOLE MAGNESIUM
     Dates: start: 20110710
  43. LEVOTHYROXINE [Concomitant]
     Active Substance: LEVOTHYROXINE
     Dates: start: 20110710
  44. PAROXETINE HCL [Concomitant]
     Active Substance: PAROXETINE HYDROCHLORIDE
     Indication: DEPRESSION
     Route: 048
     Dates: start: 20051130, end: 20061201
  45. SIMVASTATIN. [Concomitant]
     Active Substance: SIMVASTATIN
     Dates: start: 201005
  46. SEROQUEL [Suspect]
     Active Substance: QUETIAPINE FUMARATE
     Indication: ANXIETY
     Dosage: 25 TO 75 MG
     Route: 048
     Dates: start: 20041206, end: 20051215
  47. TRAZODONE [Concomitant]
     Active Substance: TRAZODONE HYDROCHLORIDE
     Indication: INSOMNIA
     Dates: start: 20110710
  48. RANITIDINE HCL [Concomitant]
     Active Substance: RANITIDINE HYDROCHLORIDE
     Indication: GASTROINTESTINAL DISORDER
     Route: 048
     Dates: start: 20051130, end: 20061201
  49. BUPROPION [Concomitant]
     Active Substance: BUPROPION
     Dates: start: 20021002, end: 20021018
  50. INSULIN [Concomitant]
     Active Substance: INSULIN NOS
     Indication: DIABETES MELLITUS
     Dosage: 70/30 15 UNITS SUBCUTANEOUSLY TWICE A DAY
     Dates: start: 20051016
  51. THIAMINE [Concomitant]
     Active Substance: THIAMINE
     Dates: start: 20051016
  52. OMEPRAZOLE. [Concomitant]
     Active Substance: OMEPRAZOLE
     Route: 048
     Dates: start: 20111221
  53. AMOXICILLIN. [Concomitant]
     Active Substance: AMOXICILLIN
     Route: 048
     Dates: start: 20120112
  54. SEROQUEL [Suspect]
     Active Substance: QUETIAPINE FUMARATE
     Indication: POST-TRAUMATIC STRESS DISORDER
     Route: 048
     Dates: start: 20051103, end: 20051215
  55. SEROQUEL [Suspect]
     Active Substance: QUETIAPINE FUMARATE
     Indication: ANXIETY
     Route: 048
     Dates: start: 20051130, end: 20061201
  56. SERTRALINE [Concomitant]
     Active Substance: SERTRALINE HYDROCHLORIDE
     Indication: DEPRESSION
     Dates: start: 20001120
  57. PRAVASTATIN NA [Concomitant]
     Route: 048
  58. ARIPIPRAZOLE. [Concomitant]
     Active Substance: ARIPIPRAZOLE
     Dates: start: 20100525
  59. CARBAMAZEPINE. [Concomitant]
     Active Substance: CARBAMAZEPINE
     Indication: SCHIZOPHRENIA
     Dates: start: 20131218
  60. SILDENAFIL CITRATE. [Concomitant]
     Active Substance: SILDENAFIL CITRATE
     Indication: ERECTILE DYSFUNCTION
     Dosage: 100 MG TABLET BY MOUTH AS DIRECTED.
     Route: 048
  61. SEROQUEL [Suspect]
     Active Substance: QUETIAPINE FUMARATE
     Indication: POST-TRAUMATIC STRESS DISORDER
     Dosage: 25 TO 75 MG
     Route: 048
     Dates: start: 20041206, end: 20051215
  62. SEROQUEL [Suspect]
     Active Substance: QUETIAPINE FUMARATE
     Indication: BIPOLAR I DISORDER
     Route: 048
     Dates: start: 20051103, end: 20051215
  63. SEROQUEL [Suspect]
     Active Substance: QUETIAPINE FUMARATE
     Indication: AFFECTIVE DISORDER
     Route: 048
     Dates: start: 20051103, end: 20051215
  64. SEROQUEL [Suspect]
     Active Substance: QUETIAPINE FUMARATE
     Indication: BIPOLAR I DISORDER
     Route: 048
     Dates: start: 20051130, end: 20061201
  65. SEROQUEL [Suspect]
     Active Substance: QUETIAPINE FUMARATE
     Indication: POST-TRAUMATIC STRESS DISORDER
     Route: 048
     Dates: start: 20051130, end: 20061201
  66. SERTRALINE [Concomitant]
     Active Substance: SERTRALINE HYDROCHLORIDE
     Indication: DEPRESSION
     Dates: start: 20020829
  67. TRAZODONE [Concomitant]
     Active Substance: TRAZODONE HYDROCHLORIDE
     Indication: INSOMNIA
     Route: 048
     Dates: start: 20061005
  68. ZETIA [Concomitant]
     Active Substance: EZETIMIBE
     Route: 048
  69. RISPERDAL [Concomitant]
     Active Substance: RISPERIDONE
     Dates: start: 20051003, end: 20051103
  70. ASPIRIN. [Concomitant]
     Active Substance: ASPIRIN
     Dates: start: 20110710
  71. DOCUSATE SODIUM. [Concomitant]
     Active Substance: DOCUSATE SODIUM
     Dates: start: 20110710
  72. ATORVASTATIN CALCIUM. [Concomitant]
     Active Substance: ATORVASTATIN CALCIUM
     Indication: BLOOD CHOLESTEROL ABNORMAL
     Route: 048
  73. FUROSEMIDE. [Concomitant]
     Active Substance: FUROSEMIDE
     Dates: start: 20110719
  74. LISINOPRIL. [Concomitant]
     Active Substance: LISINOPRIL
     Dates: start: 20110719
  75. ZYPREXA [Concomitant]
     Active Substance: OLANZAPINE
     Dates: start: 20110718

REACTIONS (44)
  - Brain injury [Unknown]
  - Dementia [Unknown]
  - Pericarditis [Unknown]
  - Electroencephalogram abnormal [Unknown]
  - Electrolyte imbalance [Unknown]
  - Delirium [Unknown]
  - Renal disorder [Unknown]
  - Blood creatinine increased [Unknown]
  - Hepatic failure [Unknown]
  - Localised intraabdominal fluid collection [Unknown]
  - Hypomagnesaemia [Unknown]
  - Pulmonary oedema [Unknown]
  - Hyperglycaemia [Unknown]
  - Hyperlipidaemia [Unknown]
  - Hypercholesterolaemia [Unknown]
  - Cardiac arrest [Unknown]
  - Troponin increased [Unknown]
  - Pelvic fluid collection [Unknown]
  - Atelectasis [Unknown]
  - Pancreatitis [Unknown]
  - Metabolic acidosis [Unknown]
  - Hyponatraemia [Unknown]
  - Pyrexia [Unknown]
  - Vomiting [Unknown]
  - Type 2 diabetes mellitus [Unknown]
  - Blood potassium decreased [Unknown]
  - Nausea [Unknown]
  - Renal tubular necrosis [Unknown]
  - Pneumonia [Unknown]
  - Ischaemia [Unknown]
  - Blood glucose increased [Unknown]
  - Encephalopathy [Unknown]
  - Diabetic coma [Unknown]
  - Diabetic hyperosmolar coma [Unknown]
  - Diabetic neuropathy [Unknown]
  - Pancreatitis acute [Unknown]
  - Myocardial infarction [Unknown]
  - Hyperglycaemic seizure [Unknown]
  - Diabetes mellitus [Unknown]
  - Respiratory failure [Unknown]
  - Pleural effusion [Unknown]
  - Acute kidney injury [Unknown]
  - Multi-organ failure [Unknown]
  - Seizure [Unknown]

NARRATIVE: CASE EVENT DATE: 2005
